FAERS Safety Report 8819479 (Version 1)
Quarter: 2012Q4

REPORT INFORMATION
  Report Type: 
  Country: FR (occurrence: US)
  Receive Date: 20120930
  Receipt Date: 20120930
  Transmission Date: 20130627
  Serious: Yes (Hospitalization)
  Sender: FDA-Public Use
  Company Number: US-BRISTOL-MYERS SQUIBB COMPANY-16978751

PATIENT
  Age: 66 Year
  Sex: Female

DRUGS (2)
  1. METFORMIN HCL [Suspect]
     Route: 065
  2. GLYBURIDE [Suspect]
     Route: 048

REACTIONS (2)
  - Gallbladder operation [Unknown]
  - Blood glucose increased [Unknown]
